FAERS Safety Report 8578265-4 (Version None)
Quarter: 2012Q3

REPORT INFORMATION
  Report Type: 
  Country: None (occurrence: None)
  Receive Date: 20120808
  Receipt Date: 20120731
  Transmission Date: 20120928
  Serious: Yes (Hospitalization)
  Sender: FDA-Public Use
  Company Number: US-BAYER-2012-078795

PATIENT
  Age: 20 Year
  Sex: Female
  Weight: 70.295 kg

DRUGS (3)
  1. YASMIN [Suspect]
  2. YAZ [Suspect]
  3. IBUPROFEN [Concomitant]

REACTIONS (1)
  - CEREBROVASCULAR ACCIDENT [None]
